FAERS Safety Report 8873453 (Version 1)
Quarter: 2012Q4

REPORT INFORMATION
  Report Type: 
  Country: US (occurrence: US)
  Receive Date: 20121023
  Receipt Date: 20121023
  Transmission Date: 20130627
  Serious: Yes (Hospitalization)
  Sender: FDA-Public Use
  Company Number: US-B.I. PHARMACEUTICALS,INC./RIDGEFIELD-2012-BP-25750BP

PATIENT
  Age: 64 Year
  Sex: Female

DRUGS (2)
  1. TRADJENTA [Suspect]
     Indication: DIABETES MELLITUS MANAGEMENT
     Route: 048
     Dates: start: 20121006, end: 20121013
  2. TRADJENTA [Suspect]
     Indication: TYPE 2 DIABETES MELLITUS

REACTIONS (3)
  - Platelet count decreased [Not Recovered/Not Resolved]
  - Rash [Recovered/Resolved]
  - Rash [Not Recovered/Not Resolved]
